FAERS Safety Report 17283486 (Version 4)
Quarter: 2020Q2

REPORT INFORMATION
  Report Type: Report from Study
  Country: GB (occurrence: GB)
  Receive Date: 20200117
  Receipt Date: 20200608
  Transmission Date: 20200713
  Serious: Yes (Other)
  Sender: FDA-Public Use
  Company Number: NVSC2020GB006697

PATIENT
  Age: 63 Year
  Sex: Female

DRUGS (2)
  1. SANDOSTATIN LAR DEPOT [Suspect]
     Active Substance: OCTREOTIDE ACETATE
     Dosage: 30 MG (EVERY 21 DAYS)
     Route: 030
     Dates: start: 20120101
  2. SANDOSTATIN LAR DEPOT [Suspect]
     Active Substance: OCTREOTIDE ACETATE
     Indication: NEUROENDOCRINE TUMOUR
     Dosage: 30 MG (EVERY 21 DAYS)
     Route: 030
     Dates: start: 20120101

REACTIONS (11)
  - Diabetes mellitus [Recovering/Resolving]
  - Diabetes mellitus inadequate control [Unknown]
  - Inappropriate schedule of product administration [Unknown]
  - Musculoskeletal pain [Unknown]
  - Malaise [Recovering/Resolving]
  - Blood test abnormal [Unknown]
  - Pain [Recovering/Resolving]
  - Myalgia [Recovering/Resolving]
  - Angina pectoris [Recovering/Resolving]
  - Blood cholesterol increased [Recovering/Resolving]
  - Arthralgia [Unknown]
